FAERS Safety Report 8107068-X (Version None)
Quarter: 2012Q1

REPORT INFORMATION
  Report Type: 
  Country: None (occurrence: None)
  Receive Date: 20120202
  Receipt Date: 20120125
  Transmission Date: 20120608
  Serious: Yes (Other)
  Sender: FDA-Public Use
  Company Number: US-PFIZER INC-2012026014

PATIENT
  Sex: Female

DRUGS (2)
  1. PROCARDIA XL [Suspect]
     Dosage: UNK
     Route: 048
  2. ACCUPRIL [Suspect]
     Dosage: UNK
     Route: 048

REACTIONS (3)
  - HEART RATE IRREGULAR [None]
  - KNEE OPERATION [None]
  - HYPERTENSION [None]
